FAERS Safety Report 7524078-1 (Version None)
Quarter: 2011Q2

REPORT INFORMATION
  Report Type: 
  Country: None (occurrence: None)
  Receive Date: 20110606
  Receipt Date: 20110527
  Transmission Date: 20111010
  Serious: Yes (Hospitalization)
  Sender: FDA-Public Use
  Company Number: US-BIOGENIDEC-2010BI032953

PATIENT
  Age: 63 Year
  Sex: Male
  Weight: 109 kg

DRUGS (27)
  1. FUROSEMIDE [Concomitant]
  2. FUROSEMIDE [Concomitant]
  3. FLOMAX [Concomitant]
     Route: 048
  4. LIPITOR [Concomitant]
  5. METFORMIN HCL [Concomitant]
     Indication: DIABETES MELLITUS
     Route: 048
  6. FUROSEMIDE [Concomitant]
     Route: 048
  7. ACETAMINOPHEN [Concomitant]
  8. LANTUS [Concomitant]
     Indication: DIABETES MELLITUS
     Route: 058
  9. OMEPRAZOLE [Concomitant]
     Route: 048
  10. OMEPRAZOLE [Concomitant]
  11. LISINOPRIL [Concomitant]
  12. FISH OIL [Concomitant]
     Route: 048
  13. VITAMIN D [Concomitant]
  14. LIDEX [Concomitant]
     Indication: PSORIASIS
  15. DOCUSATE [Concomitant]
  16. FERROUS SULFATE TAB [Concomitant]
  17. LIPITOR [Concomitant]
     Indication: HYPERCHOLESTEROLAEMIA
     Route: 048
  18. DOXAZOSIN MESYLATE [Concomitant]
  19. TYSABRI [Suspect]
     Indication: MULTIPLE SCLEROSIS
     Route: 042
     Dates: start: 20090617
  20. PLAVIX [Concomitant]
     Indication: CARDIOVASCULAR DISORDER
     Route: 048
  21. LISINOPRIL [Concomitant]
     Route: 048
  22. TYLENOL (CAPLET) [Concomitant]
  23. GABAPENTIN [Concomitant]
     Route: 048
  24. MULTI-VITAMIN [Concomitant]
  25. HUMALOG [Concomitant]
  26. LISINOPRIL [Concomitant]
     Route: 048
  27. ASCORBIC ACID [Concomitant]

REACTIONS (1)
  - SKIN ULCER [None]
